FAERS Safety Report 19168886 (Version 1)
Quarter: 2021Q2

REPORT INFORMATION
  Report Type: Spontaneous
  Country: RU (occurrence: RU)
  Receive Date: 20210422
  Receipt Date: 20210422
  Transmission Date: 20210717
  Serious: Yes (Other)
  Sender: FDA-Public Use
  Company Number: RU-BRISTOL-MYERS SQUIBB COMPANY-BMS-2021-037799

PATIENT
  Age: 64 Year

DRUGS (1)
  1. ELIQUIS [Suspect]
     Active Substance: APIXABAN
     Indication: PRODUCT USED FOR UNKNOWN INDICATION
     Dosage: 2.5 MILLIGRAM, BID
     Route: 065

REACTIONS (1)
  - Transient ischaemic attack [Unknown]

NARRATIVE: CASE EVENT DATE: 20210414
